FAERS Safety Report 13748474 (Version 1)
Quarter: 2017Q3

REPORT INFORMATION
  Report Type: Report from Study
  Country: PK (occurrence: PK)
  Receive Date: 20170713
  Receipt Date: 20170713
  Transmission Date: 20171127
  Serious: Yes (Other)
  Sender: FDA-Public Use
  Company Number: PK-ROCHE-1960062

PATIENT

DRUGS (1)
  1. CEFTRIAXONE. [Suspect]
     Active Substance: CEFTRIAXONE
     Indication: PRODUCT USED FOR UNKNOWN INDICATION
     Route: 065

REACTIONS (14)
  - Nephrolithiasis [Unknown]
  - White blood cell count decreased [Unknown]
  - Neutrophil count increased [Unknown]
  - Cough [Unknown]
  - Dyspnoea [Unknown]
  - Hydronephrosis [Unknown]
  - Blood urea increased [Unknown]
  - Lymphocyte count decreased [Unknown]
  - Blood creatinine increased [Unknown]
  - Pyrexia [Unknown]
  - Lymphocyte count increased [Unknown]
  - Drug interaction [Unknown]
  - White blood cell count increased [Unknown]
  - Sepsis [Unknown]
